FAERS Safety Report 5254835-6 (Version None)
Quarter: 2007Q1

REPORT INFORMATION
  Report Type: 
  Country: None (occurrence: None)
  Receive Date: 20070305
  Receipt Date: 20070221
  Transmission Date: 20070707
  Serious: Yes (Death)
  Sender: FDA-Public Use
  Company Number: US-ELI_LILLY_AND_COMPANY-USA031254005

PATIENT
  Age: 20 Year
  Sex: Female

DRUGS (6)
  1. ZYPREXA [Suspect]
     Indication: INTERMITTENT EXPLOSIVE DISORDER
     Dosage: 20 MG, DAILY (1/D)
     Dates: start: 20030601
  2. ZYPREXA [Suspect]
     Dosage: 15 MG, 2/D
  3. TOPIRAMATE [Concomitant]
     Dosage: UNK, UNKNOWN
  4. CARBAMAZEPINE [Concomitant]
     Dosage: UNK, UNKNOWN
  5. LEVOTHYROXINE SODIUM [Concomitant]
  6. LITHIUM CARBONATE [Concomitant]

REACTIONS (3)
  - DEPRESSED LEVEL OF CONSCIOUSNESS [None]
  - DRUG TOXICITY [None]
  - PRESCRIBED OVERDOSE [None]
